FAERS Safety Report 7198051-X (Version None)
Quarter: 2010Q4

REPORT INFORMATION
  Report Type: 
  Country: None (occurrence: None)
  Receive Date: 20101227
  Receipt Date: 20101217
  Transmission Date: 20110411
  Serious: Yes (Other)
  Sender: FDA-Public Use
  Company Number: JP-ROCHE-750088

PATIENT
  Sex: Female

DRUGS (1)
  1. HERCEPTIN [Suspect]
     Dosage: NOTE: DOSAGE IS UNCERTAIN
     Route: 041

REACTIONS (2)
  - PULMONARY HYPERTENSION [None]
  - PULMONARY INFARCTION [None]
